FAERS Safety Report 7701087-0 (Version None)
Quarter: 2011Q3

REPORT INFORMATION
  Report Type: 
  Country: None (occurrence: None)
  Receive Date: 20110822
  Receipt Date: 20110818
  Transmission Date: 20111222
  Serious: No
  Sender: FDA-Public Use
  Company Number: US-PFIZER INC-2011191153

PATIENT
  Sex: Female
  Weight: 89 kg

DRUGS (3)
  1. DIOVAN [Concomitant]
     Indication: HYPERTENSION
     Dosage: UNK
  2. GLIPIZIDE [Concomitant]
     Indication: DIABETES MELLITUS
     Dosage: 2.5 MG, UNK
  3. LIPITOR [Suspect]
     Indication: BLOOD CHOLESTEROL INCREASED
     Dosage: 10 MG, 1X/DAY
     Route: 048
     Dates: start: 20050101

REACTIONS (3)
  - FEELING ABNORMAL [None]
  - NAUSEA [None]
  - DYSGEUSIA [None]
